FAERS Safety Report 18455848 (Version 7)
Quarter: 2021Q4

REPORT INFORMATION
  Report Type: Report from Study
  Country: US (occurrence: None)
  Receive Date: 20201102
  Receipt Date: 20211224
  Transmission Date: 20220303
  Serious: Yes (Hospitalization)
  Sender: FDA-Public Use
  Company Number: US-ROCHE-2701129

PATIENT
  Age: 58 Year
  Sex: Female
  Weight: 69.008 kg

DRUGS (25)
  1. ATEZOLIZUMAB [Suspect]
     Active Substance: ATEZOLIZUMAB
     Indication: Triple negative breast cancer
     Dosage: LAST ADMIN DATE: 01/OCT/2020 ONGOING:HOLD?LAST ADMIN DATE: 04/NOV/2020
     Route: 041
     Dates: start: 20200826
  2. CARBOPLATIN [Suspect]
     Active Substance: CARBOPLATIN
     Indication: Triple negative breast cancer
     Dosage: 6AUC, LAST ADMIN DOSE:23/OCT/2020,ONGOING:HOLD?LAST ADMIN DATE: 04/NOV/2020
     Route: 042
     Dates: start: 20200826
  3. CARBOPLATIN [Suspect]
     Active Substance: CARBOPLATIN
     Route: 042
     Dates: start: 20201117
  4. XANAX [Concomitant]
     Active Substance: ALPRAZOLAM
     Indication: Insomnia
     Dates: start: 20200721
  5. ABILIFY [Concomitant]
     Active Substance: ARIPIPRAZOLE
     Indication: Anxiety
     Dates: start: 2019
  6. ZOFRAN [Concomitant]
     Active Substance: ONDANSETRON HYDROCHLORIDE
     Indication: Nausea
     Dosage: AS REQUIRED
     Dates: start: 20200820
  7. ZOFRAN [Concomitant]
     Active Substance: ONDANSETRON HYDROCHLORIDE
  8. NORCO [Concomitant]
     Active Substance: ACETAMINOPHEN\HYDROCODONE BITARTRATE
     Dosage: 5 TO 325MG
     Dates: start: 202008
  9. MOTRIN [Concomitant]
     Active Substance: IBUPROFEN
     Indication: Headache
     Dates: start: 20201005
  10. MOTRIN [Concomitant]
     Active Substance: IBUPROFEN
     Indication: Arthralgia
  11. MOTRIN [Concomitant]
     Active Substance: IBUPROFEN
     Indication: Pyrexia
  12. IMODIUM [Concomitant]
     Active Substance: LOPERAMIDE HYDROCHLORIDE
     Indication: Diarrhoea
     Dates: start: 20201003
  13. CIPROFLOXACIN [Concomitant]
     Active Substance: CIPROFLOXACIN
     Indication: Febrile neutropenia
     Dates: start: 20201013, end: 20201013
  14. TYLENOL [Concomitant]
     Active Substance: ACETAMINOPHEN
     Route: 048
  15. VITAMIN D2 [Concomitant]
     Active Substance: ERGOCALCIFEROL
     Dosage: 8 DOSES
  16. COMPAZINE [Concomitant]
     Active Substance: PROCHLORPERAZINE MALEATE
     Indication: Nausea
  17. ULTRAM [Concomitant]
     Active Substance: TRAMADOL HYDROCHLORIDE
     Indication: Pain
     Dosage: 20 TABLET
  18. VALTREX [Concomitant]
     Active Substance: VALACYCLOVIR HYDROCHLORIDE
     Dosage: DAY FOR 7 DAYS.
  19. EFFEXOR XR [Concomitant]
     Active Substance: VENLAFAXINE HYDROCHLORIDE
  20. NEURONTIN [Concomitant]
     Active Substance: GABAPENTIN
     Route: 048
  21. VIBRAMYCIN [Concomitant]
     Active Substance: DOXYCYCLINE
  22. CALCIUM\VITAMIN D [Concomitant]
     Active Substance: CALCIUM\VITAMIN D
  23. ELIQUIS [Concomitant]
     Active Substance: APIXABAN
  24. GLUCAGON [Concomitant]
     Active Substance: GLUCAGON
     Dosage: GLUCAGON 3 MG/ACTUATION NASAL SPRAY
     Dates: start: 20211213
  25. OXYCODONE [Concomitant]
     Active Substance: OXYCODONE

REACTIONS (4)
  - Peripheral motor neuropathy [Not Recovered/Not Resolved]
  - Pyrexia [Not Recovered/Not Resolved]
  - Hyperglycaemia [Unknown]
  - Pericardial effusion [Recovered/Resolved]

NARRATIVE: CASE EVENT DATE: 20201020
